FAERS Safety Report 15332236 (Version 2)
Quarter: 2018Q4

REPORT INFORMATION
  Report Type: Spontaneous
  Country: US (occurrence: US)
  Receive Date: 20180829
  Receipt Date: 20181006
  Transmission Date: 20190204
  Serious: No
  Sender: FDA-Public Use
  Company Number: PHHY2018US084792

PATIENT
  Sex: Male

DRUGS (1)
  1. SYSTANE BALANCE [Suspect]
     Active Substance: PROPYLENE GLYCOL
     Indication: EYE DISORDER
     Dosage: 2 GTT, QD
     Route: 047

REACTIONS (2)
  - Foreign body sensation in eyes [Recovered/Resolved]
  - Product quality issue [Unknown]
